FAERS Safety Report 6466995-X (Version None)
Quarter: 2009Q4

REPORT INFORMATION
  Report Type: 
  Country: None (occurrence: None)
  Receive Date: 20091202
  Receipt Date: 20091120
  Transmission Date: 20100525
  Serious: Yes (Death)
  Sender: FDA-Public Use
  Company Number: US-ELI_LILLY_AND_COMPANY-US200911005800

PATIENT
  Age: 38 Year
  Sex: Male

DRUGS (2)
  1. ZYPREXA [Suspect]
     Indication: SCHIZOPHRENIA
     Dosage: 40 MG, UNK
     Dates: start: 20050101, end: 20090101
  2. INVEGA [Concomitant]
     Dates: start: 20090101

REACTIONS (3)
  - COMPLETED SUICIDE [None]
  - OVERDOSE [None]
  - TYPE 1 DIABETES MELLITUS [None]
